FAERS Safety Report 8881207 (Version 1)
Quarter: 2012Q4

REPORT INFORMATION
  Report Type: 
  Country: AU (occurrence: AU)
  Receive Date: 20121031
  Receipt Date: 20121031
  Transmission Date: 20130627
  Serious: Yes (Life-Threatening)
  Sender: FDA-Public Use
  Company Number: AU-ROCHE-1148046

PATIENT
  Age: 52 Year
  Sex: Male

DRUGS (6)
  1. OSELTAMIVIR [Suspect]
     Indication: PRODUCT USED FOR UNKNOWN INDICATION
     Dosage: 1 time administered
     Route: 065
     Dates: start: 20120713, end: 20120713
  2. AMINOPHYLLINE [Suspect]
     Indication: PRODUCT USED FOR UNKNOWN INDICATION
     Route: 065
     Dates: start: 20120713, end: 20120713
  3. AZITHROMYCIN [Suspect]
     Indication: PRODUCT USED FOR UNKNOWN INDICATION
     Route: 065
     Dates: start: 20120713, end: 20120714
  4. CEFTRIAXONE [Concomitant]
     Route: 065
     Dates: start: 20120713
  5. HYDROCORTISONE [Concomitant]
     Dosage: 1 time
     Route: 065
     Dates: start: 20120713
  6. PREDNISOLONE [Concomitant]
     Route: 065
     Dates: start: 20120713

REACTIONS (1)
  - Grand mal convulsion [Not Recovered/Not Resolved]
